FAERS Safety Report 18052521 (Version 1)
Quarter: 2020Q3

REPORT INFORMATION
  Report Type: Spontaneous
  Country: IT (occurrence: IT)
  Receive Date: 20200722
  Receipt Date: 20200722
  Transmission Date: 20201103
  Serious: Yes (Other)
  Sender: FDA-Public Use
  Company Number: NVSC2020IT198673

PATIENT
  Age: 50 Year
  Sex: Female

DRUGS (1)
  1. ZARZIO SOLUTION FOR INJECTION/INFUSION IN A PREFILLED SYRINGE 30MU/0.5 [Suspect]
     Active Substance: FILGRASTIM
     Indication: PRODUCT USED FOR UNKNOWN INDICATION
     Dosage: UNK
     Route: 065
     Dates: start: 20191001, end: 20200310

REACTIONS (2)
  - Pancytopenia [Not Recovered/Not Resolved]
  - Epistaxis [Not Recovered/Not Resolved]

NARRATIVE: CASE EVENT DATE: 20200318
